FAERS Safety Report 13936579 (Version 2)
Quarter: 2017Q3

REPORT INFORMATION
  Report Type: Report from Study
  Country: US (occurrence: US)
  Receive Date: 20170905
  Receipt Date: 20170918
  Transmission Date: 20171127
  Serious: Yes (Hospitalization)
  Sender: FDA-Public Use
  Company Number: US-EISAI MEDICAL RESEARCH-EC-2016-022665

PATIENT
  Age: 79 Year
  Sex: Male

DRUGS (3)
  1. LENVIMA [Suspect]
     Active Substance: LENVATINIB
     Route: 048
     Dates: start: 201611, end: 20170825
  2. LENVIMA [Suspect]
     Active Substance: LENVATINIB
     Route: 048
     Dates: start: 2017, end: 20170904
  3. LENVIMA [Suspect]
     Active Substance: LENVATINIB
     Indication: THYROID CANCER
     Route: 048
     Dates: start: 201606, end: 201611

REACTIONS (14)
  - Loss of consciousness [Unknown]
  - Eye injury [Recovering/Resolving]
  - Rash [Recovering/Resolving]
  - Contusion [Recovered/Resolved]
  - Tachycardia [Recovering/Resolving]
  - Stomatitis [Recovered/Resolved]
  - Burning sensation [Recovering/Resolving]
  - Heart rate irregular [Recovered/Resolved]
  - Neuralgia [Recovering/Resolving]
  - Fall [Recovering/Resolving]
  - Oedema peripheral [Recovered/Resolved]
  - Dry skin [Recovering/Resolving]
  - Dehydration [Recovering/Resolving]
  - Diarrhoea [Unknown]

NARRATIVE: CASE EVENT DATE: 2016
